FAERS Safety Report 4811184-5 (Version None)
Quarter: 2005Q4

REPORT INFORMATION
  Report Type: 
  Country: None (occurrence: None)
  Receive Date: 20051027
  Receipt Date: 20051014
  Transmission Date: 20060501
  Serious: Yes (Other)
  Sender: FDA-Public Use
  Company Number: SE-GLAXOSMITHKLINE-B0397650A

PATIENT
  Sex: Female

DRUGS (5)
  1. ACETAMINOPHEN [Suspect]
     Indication: ANALGESIC EFFECT
     Dosage: 1G PER DAY
     Route: 048
     Dates: start: 19971013, end: 19971013
  2. CARBOCAIN [Suspect]
     Dosage: 185ML PER DAY
     Route: 042
     Dates: start: 19971013, end: 19971013
  3. VOLTAREN [Suspect]
     Indication: ANALGESIC EFFECT
     Dosage: 100MG PER DAY
     Route: 042
     Dates: start: 19971013, end: 19971013
  4. TORADOL [Suspect]
     Indication: ANALGESIC EFFECT
     Dosage: 30MG PER DAY
     Route: 042
     Dates: start: 19971013, end: 19971013
  5. KETOGAN [Suspect]
     Indication: ANALGESIC EFFECT
     Dosage: 2.5MG PER DAY
     Route: 042
     Dates: start: 19971013, end: 19971013

REACTIONS (3)
  - ABORTION SPONTANEOUS [None]
  - DRUG EXPOSURE DURING PREGNANCY [None]
  - FOETAL GROWTH RETARDATION [None]
